FAERS Safety Report 5601076-6 (Version None)
Quarter: 2008Q1

REPORT INFORMATION
  Report Type: 
  Country: None (occurrence: None)
  Receive Date: 20080118
  Receipt Date: 20080109
  Transmission Date: 20080703
  Serious: Yes (Death, Other)
  Sender: FDA-Public Use
  Company Number: GXKR2008IR00664

PATIENT
  Age: 36 Year
  Sex: Male

DRUGS (5)
  1. CYCLOSPORINE [Suspect]
     Indication: IMMUNOSUPPRESSION
     Dosage: 8 MG/KG/DAY; 100 MG, Q12H
  2. AZATHIOPRINE [Suspect]
     Indication: IMMUNOSUPPRESSION
     Dosage: 4 MG/KG/DAY
  3. PREDNISONE [Suspect]
     Indication: IMMUNOSUPPRESSION
     Dosage: 25 MG/DAY
  4. MYCOPHENOLATE MOFETIL [Suspect]
     Indication: IMMUNOSUPPRESSION
     Dosage: 1 G, Q12H
  5. PREDNISOLONE [Suspect]
     Indication: IMMUNOSUPPRESSION
     Dosage: 7.5 MG/DAY

REACTIONS (10)
  - GENERAL PHYSICAL HEALTH DETERIORATION [None]
  - HAEMOPTYSIS [None]
  - HEPATITIS [None]
  - KAPOSI'S SARCOMA [None]
  - PNEUMONIA [None]
  - PNEUMONIA LIPOID [None]
  - PRODUCTIVE COUGH [None]
  - PULMONARY HAEMORRHAGE [None]
  - PULMONARY OEDEMA [None]
  - RESPIRATORY ARREST [None]
